FAERS Safety Report 6189051-7 (Version None)
Quarter: 2009Q2

REPORT INFORMATION
  Report Type: 
  Country: None (occurrence: None)
  Receive Date: 20090512
  Receipt Date: 20090501
  Transmission Date: 20091009
  Serious: Yes (Life-Threatening)
  Sender: FDA-Public Use
  Company Number: SPV1-2009-00601

PATIENT
  Age: 18 Year
  Sex: Male
  Weight: 64 kg

DRUGS (1)
  1. ELAPRASE [Suspect]
     Indication: MUCOPOLYSACCHARIDOSIS II
     Dosage: 1X/WEEK, IV DRIP
     Route: 041
     Dates: start: 20090211

REACTIONS (5)
  - ANAPHYLACTIC REACTION [None]
  - HYPERAEMIA [None]
  - INFUSION RELATED REACTION [None]
  - JUDGEMENT IMPAIRED [None]
  - ORTHOSTATIC HYPOTENSION [None]
